FAERS Safety Report 19887445 (Version 1)
Quarter: 2021Q3

REPORT INFORMATION
  Report Type: Spontaneous
  Country: JP (occurrence: JP)
  Receive Date: 20210928
  Receipt Date: 20210928
  Transmission Date: 20211014
  Serious: No
  Sender: FDA-Public Use
  Company Number: JP-JNJFOC-20210933271

PATIENT

DRUGS (12)
  1. DUROTEP [Suspect]
     Active Substance: FENTANYL
     Dosage: STRENGTH: UNKNOWN
     Route: 062
  2. ONEDURO [Suspect]
     Active Substance: FENTANYL
  3. DUROTEP [Suspect]
     Active Substance: FENTANYL
  4. ONEDURO [Suspect]
     Active Substance: FENTANYL
  5. ONEDURO [Suspect]
     Active Substance: FENTANYL
  6. DUROTEP [Suspect]
     Active Substance: FENTANYL
  7. ONEDURO [Suspect]
     Active Substance: FENTANYL
     Indication: PRODUCT USED FOR UNKNOWN INDICATION
     Dosage: DOSE UNKNOWN
     Route: 062
  8. ONEDURO [Suspect]
     Active Substance: FENTANYL
     Dosage: STRENGTH: UNKNOWN
     Route: 062
  9. ONEDURO [Suspect]
     Active Substance: FENTANYL
  10. DUROTEP [Suspect]
     Active Substance: FENTANYL
  11. DUROTEP [Suspect]
     Active Substance: FENTANYL
  12. DUROTEP [Suspect]
     Active Substance: FENTANYL
     Indication: PRODUCT USED FOR UNKNOWN INDICATION
     Dosage: DOSE UNKNOWN
     Route: 062

REACTIONS (3)
  - Off label use [Unknown]
  - Product adhesion issue [Unknown]
  - Wrong technique in product usage process [Unknown]
